FAERS Safety Report 7372498-0 (Version None)
Quarter: 2011Q1

REPORT INFORMATION
  Report Type: 
  Country: None (occurrence: None)
  Receive Date: 20110324
  Receipt Date: 20110317
  Transmission Date: 20110831
  Serious: Yes (Hospitalization)
  Sender: FDA-Public Use
  Company Number: JP-ROCHE-767038

PATIENT
  Sex: Female

DRUGS (1)
  1. ACTEMRA [Suspect]
     Indication: RHEUMATOID ARTHRITIS
     Route: 042
     Dates: start: 20110113, end: 20110316

REACTIONS (4)
  - AORTITIS [None]
  - PNEUMONIA [None]
  - PERICARDIAL EFFUSION [None]
  - PLEURAL EFFUSION [None]
